FAERS Safety Report 6847542-7 (Version None)
Quarter: 2010Q3

REPORT INFORMATION
  Report Type: 
  Country: None (occurrence: None)
  Receive Date: 20100714
  Receipt Date: 20100702
  Transmission Date: 20110219
  Serious: Yes (Other)
  Sender: FDA-Public Use
  Company Number: 8030822

PATIENT
  Sex: Male

DRUGS (5)
  1. KEPPRA [Suspect]
     Dosage: (500 MG BID TRANSPLACENTAL) (500 MG BID TRANSMAMMARY)
     Dates: start: 20050513
  2. PRENATAL VITAMINS /01549301/ [Concomitant]
  3. CITALOPRAM HYDROBROMIDE [Concomitant]
  4. MONTELUKAST [Concomitant]
  5. ALBUTEROL [Concomitant]

REACTIONS (3)
  - MATERNAL DRUGS AFFECTING FOETUS [None]
  - SPEECH DISORDER DEVELOPMENTAL [None]
  - VENTRICULAR SEPTAL DEFECT [None]
